FAERS Safety Report 9442072 (Version 1)
Quarter: 2013Q3

REPORT INFORMATION
  Report Type: Spontaneous
  Country: US (occurrence: US)
  Receive Date: 20130806
  Receipt Date: 20130806
  Transmission Date: 20140515
  Serious: No
  Sender: FDA-Public Use
  Company Number: US-BAYER-2013-094708

PATIENT
  Sex: 0

DRUGS (7)
  1. ALEVE CAPLET [Suspect]
     Dosage: UNK
  2. TRAMADOL [Concomitant]
  3. TYLENOL [PARACETAMOL] [Concomitant]
  4. EXCEDRIN [CAFFEINE,PARACETAMOL] [Concomitant]
  5. MOTRIN [Concomitant]
  6. ADVIL [Concomitant]
  7. GOODYS [Concomitant]

REACTIONS (1)
  - Drug ineffective [None]
